FAERS Safety Report 14682358 (Version 1)
Quarter: 2018Q1

REPORT INFORMATION
  Report Type: Spontaneous
  Country: DE (occurrence: DE)
  Receive Date: 20180326
  Receipt Date: 20180326
  Transmission Date: 20180509
  Serious: Yes (Other)
  Sender: FDA-Public Use
  Company Number: DE-ASTRAZENECA-2018SE36540

PATIENT
  Age: 70 Year
  Sex: Female

DRUGS (2)
  1. IBRANCE [Suspect]
     Active Substance: PALBOCICLIB
     Dosage: UNK
     Route: 048
  2. FULVESTRANT. [Suspect]
     Active Substance: FULVESTRANT
     Dosage: UNK
     Route: 030

REACTIONS (1)
  - Alveolitis [Unknown]
